FAERS Safety Report 16909335 (Version 1)
Quarter: 2019Q4

REPORT INFORMATION
  Report Type: Spontaneous
  Country: US (occurrence: US)
  Receive Date: 20190820
  Receipt Date: 20190820
  Transmission Date: 20200122
  Serious: Yes (Hospitalization)
  Sender: FDA-Public Use
  Company Number: None

PATIENT
  Age: 21 Year
  Sex: Male

DRUGS (6)
  1. PREDNISONE. [Concomitant]
     Active Substance: PREDNISONE
  2. PEPCID [Concomitant]
     Active Substance: FAMOTIDINE
  3. HUMIRA [Suspect]
     Active Substance: ADALIMUMAB
     Indication: COLITIS ULCERATIVE
     Route: 058
     Dates: start: 20180823
  4. BUDESONIDE. [Concomitant]
     Active Substance: BUDESONIDE
  5. LIALDA [Concomitant]
     Active Substance: MESALAMINE
  6. IMODIUM AD [Concomitant]
     Active Substance: LOPERAMIDE HYDROCHLORIDE

REACTIONS (11)
  - Bladder disorder [None]
  - Accident [None]
  - Injury [None]
  - Tooth injury [None]
  - Hip fracture [None]
  - Jaw fracture [None]
  - Lung disorder [None]
  - Pelvic fracture [None]
  - Concussion [None]
  - Contusion [None]
  - Therapy cessation [None]

NARRATIVE: CASE EVENT DATE: 20190621
